FAERS Safety Report 6870587 (Version 10)
Quarter: 2022Q3

REPORT INFORMATION
  Report Type: Spontaneous
  Country: CA (occurrence: CA)
  Receive Date: 20081231
  Receipt Date: 20220926
  Transmission Date: 20221026
  Serious: Yes (Hospitalization, Other)
  Sender: FDA-Public Use
  Company Number: CA-BRISTOL-MYERS SQUIBB COMPANY-14457303

PATIENT
  Age: 44 Year
  Sex: Male

DRUGS (36)
  1. REYATAZ [Suspect]
     Active Substance: ATAZANAVIR SULFATE
     Indication: HIV infection
     Route: 065
  2. SUSTIVA [Suspect]
     Active Substance: EFAVIRENZ
     Indication: HIV infection
     Route: 048
     Dates: start: 20060602, end: 20070522
  3. RALTEGRAVIR POTASSIUM [Concomitant]
     Active Substance: RALTEGRAVIR POTASSIUM
     Indication: HIV infection
     Dosage: 400 MG, BID
     Route: 048
  4. RALTEGRAVIR POTASSIUM [Concomitant]
     Active Substance: RALTEGRAVIR POTASSIUM
  5. RISPERIDONE [Concomitant]
     Active Substance: RISPERIDONE
     Indication: Depression
     Route: 065
     Dates: end: 20070729
  6. RISPERIDONE [Concomitant]
     Active Substance: RISPERIDONE
     Route: 065
     Dates: start: 20070730
  7. BUPROPION HYDROCHLORIDE [Concomitant]
     Active Substance: BUPROPION HYDROCHLORIDE
     Indication: Depression
     Route: 048
     Dates: end: 20070729
  8. BUPROPION HYDROCHLORIDE [Concomitant]
     Active Substance: BUPROPION HYDROCHLORIDE
     Indication: Bipolar disorder
     Route: 048
     Dates: start: 20070730
  9. CITALOPRAM [Concomitant]
     Active Substance: CITALOPRAM HYDROBROMIDE
     Indication: Psychotic disorder
     Route: 065
  10. CITALOPRAM [Concomitant]
     Active Substance: CITALOPRAM HYDROBROMIDE
     Indication: Depression
  11. CITALOPRAM [Concomitant]
     Active Substance: CITALOPRAM HYDROBROMIDE
     Indication: Psychotic disorder
  12. CLONAZEPAM [Concomitant]
     Active Substance: CLONAZEPAM
     Indication: Depression
     Route: 065
     Dates: end: 20070729
  13. CLONAZEPAM [Concomitant]
     Active Substance: CLONAZEPAM
     Indication: Bipolar disorder
     Route: 065
     Dates: start: 20070730
  14. CLONAZEPAM [Concomitant]
     Active Substance: CLONAZEPAM
     Indication: Psychotic disorder
     Route: 065
  15. QUETIAPINE FUMARATE [Concomitant]
     Active Substance: QUETIAPINE FUMARATE
     Indication: Depression
     Route: 048
     Dates: end: 20070730
  16. QUETIAPINE FUMARATE [Concomitant]
     Active Substance: QUETIAPINE FUMARATE
     Indication: Bipolar disorder
     Route: 048
  17. ISENTRESS [Concomitant]
     Active Substance: RALTEGRAVIR POTASSIUM
     Indication: HIV infection
     Dosage: 400 MILLIGRAM, BID
     Route: 048
     Dates: start: 20070626
  18. RITONAVIR [Concomitant]
     Active Substance: RITONAVIR
     Indication: HIV infection
     Route: 065
  19. RITONAVIR [Concomitant]
     Active Substance: RITONAVIR
  20. EMTRIVA [Concomitant]
     Active Substance: EMTRICITABINE
     Indication: HIV infection
     Route: 065
  21. EMTRIVA [Concomitant]
     Active Substance: EMTRICITABINE
  22. ENFUVIRTIDE [Concomitant]
     Active Substance: ENFUVIRTIDE
     Indication: HIV infection
     Route: 058
  23. ENFUVIRTIDE [Concomitant]
     Active Substance: ENFUVIRTIDE
  24. TENOFOVIR [Concomitant]
     Active Substance: TENOFOVIR
     Indication: HIV infection
     Route: 048
  25. TENOFOVIR [Concomitant]
     Active Substance: TENOFOVIR
  26. ENFUVIRTIDE [Concomitant]
     Active Substance: ENFUVIRTIDE
     Indication: HIV infection
     Route: 048
  27. ENFUVIRTIDE [Concomitant]
     Active Substance: ENFUVIRTIDE
  28. ATAZANAVIR [Concomitant]
     Active Substance: ATAZANAVIR
     Indication: HIV infection
     Route: 065
  29. QUETIAPINE [Concomitant]
     Active Substance: QUETIAPINE
     Indication: Depression
     Route: 048
  30. CITALOPRAM HYDROBROMIDE [Concomitant]
     Active Substance: CITALOPRAM HYDROBROMIDE
     Indication: Psychotic disorder
     Route: 065
  31. CITALOPRAM HYDROBROMIDE [Concomitant]
     Active Substance: CITALOPRAM HYDROBROMIDE
     Indication: Depression
  32. KALETRA [Concomitant]
     Active Substance: LOPINAVIR\RITONAVIR
     Indication: HIV infection
     Route: 065
  33. LAMIVUDINE [Concomitant]
     Active Substance: LAMIVUDINE
     Indication: HIV infection
     Route: 065
  34. SERTRALINE HYDROCHLORIDE [Concomitant]
     Active Substance: SERTRALINE HYDROCHLORIDE
     Indication: Bipolar disorder
     Route: 065
  35. VALPROIC ACID [Concomitant]
     Active Substance: VALPROIC ACID
     Indication: Bipolar disorder
     Route: 065
  36. ZOPICLONE [Concomitant]
     Active Substance: ZOPICLONE
     Indication: Bipolar disorder
     Route: 065

REACTIONS (12)
  - Depressive symptom [Recovered/Resolved]
  - Depression [Recovered/Resolved]
  - Paranoia [Recovered/Resolved]
  - Suicidal ideation [Recovered/Resolved]
  - Tearfulness [Recovered/Resolved]
  - Psychomotor skills impaired [Recovered/Resolved]
  - Anxiety [Recovered/Resolved]
  - Depression suicidal [Recovered/Resolved]
  - Psychiatric decompensation [Recovered/Resolved]
  - Psychotic disorder [Recovered/Resolved]
  - Drug interaction [Recovered/Resolved]
  - Psychomotor retardation [Recovered/Resolved]

NARRATIVE: CASE EVENT DATE: 20060602
